FAERS Safety Report 24592198 (Version 1)
Quarter: 2024Q4

REPORT INFORMATION
  Report Type: Spontaneous
  Country: KR (occurrence: KR)
  Receive Date: 20241108
  Receipt Date: 20241108
  Transmission Date: 20250115
  Serious: Yes (Hospitalization, Other)
  Sender: ROCHE
  Company Number: KR-ROCHE-10000119240

PATIENT
  Age: 55 Year
  Sex: Male

DRUGS (2)
  1. TECENTRIQ [Suspect]
     Active Substance: ATEZOLIZUMAB
     Indication: Hepatocellular carcinoma
     Route: 042
     Dates: start: 20220512, end: 20220715
  2. BEVACIZUMAB [Suspect]
     Active Substance: BEVACIZUMAB
     Indication: Hepatocellular carcinoma
     Route: 042
     Dates: start: 20220512, end: 20220715

REACTIONS (8)
  - Myelitis transverse [Recovering/Resolving]
  - Staphylococcal sepsis [Recovering/Resolving]
  - Ascites [Unknown]
  - Liver function test decreased [Unknown]
  - Fall [Unknown]
  - Arthralgia [Unknown]
  - Gait disturbance [Unknown]
  - Off label use [Unknown]

NARRATIVE: CASE EVENT DATE: 20221001
